FAERS Safety Report 5021153-0 (Version None)
Quarter: 2006Q2

REPORT INFORMATION
  Report Type: 
  Country: None (occurrence: None)
  Receive Date: 20060608
  Receipt Date: 20060531
  Transmission Date: 20061013
  Serious: Yes (Other)
  Sender: FDA-Public Use
  Company Number: 2006AP02555

PATIENT
  Age: 21 Year
  Sex: Male
  Weight: 92 kg

DRUGS (8)
  1. ANAPEINE [Suspect]
     Indication: EPIDURAL ANAESTHESIA
     Route: 008
  2. PROPOFOL [Suspect]
     Indication: GENERAL ANAESTHESIA
     Route: 042
  3. FENTANYL CITRATE [Concomitant]
     Indication: GENERAL ANAESTHESIA
  4. VECURONIUM BROMIDE [Concomitant]
     Indication: HYPOTONIA
  5. OXYGEN [Concomitant]
     Indication: MAINTENANCE OF ANAESTHESIA
     Route: 055
  6. SEVOFLURANE [Concomitant]
     Indication: MAINTENANCE OF ANAESTHESIA
     Route: 055
  7. ATROPINE SULFATE [Concomitant]
  8. NEOSTIGMINE METHYLSULFATE [Concomitant]

REACTIONS (1)
  - PULMONARY OEDEMA [None]
